FAERS Safety Report 8782928 (Version 1)
Quarter: 2012Q4

REPORT INFORMATION
  Report Type: 
  Country: FR (occurrence: FR)
  Receive Date: 20120913
  Receipt Date: 20120913
  Transmission Date: 20130627
  Serious: Yes (Other)
  Sender: FDA-Public Use
  Company Number: FR-ROCHE-1125347

PATIENT
  Sex: Female

DRUGS (2)
  1. AVASTIN [Suspect]
     Indication: OVARIAN CANCER
     Route: 065
  2. GEMZAR [Concomitant]
     Indication: OVARIAN CANCER
     Route: 065

REACTIONS (1)
  - Vaginal perforation [Unknown]
